FAERS Safety Report 7954494-5 (Version None)
Quarter: 2011Q4

REPORT INFORMATION
  Report Type: 
  Country: None (occurrence: None)
  Receive Date: 20111202
  Receipt Date: 20111123
  Transmission Date: 20120403
  Serious: Yes (Hospitalization)
  Sender: FDA-Public Use
  Company Number: US-JNJFOC-20111010193

PATIENT
  Sex: Female
  Weight: 65.7 kg

DRUGS (17)
  1. ZOFRAN [Concomitant]
  2. NORCO [Concomitant]
  3. INFLIXIMAB, RECOMBINANT [Suspect]
     Route: 042
     Dates: start: 20111025
  4. ANTIBIOTICS [Concomitant]
     Indication: INFLAMMATORY BOWEL DISEASE
  5. ACTIGALL [Concomitant]
  6. INFLIXIMAB, RECOMBINANT [Suspect]
     Indication: INFLAMMATORY BOWEL DISEASE
     Route: 042
     Dates: start: 20110505
  7. OMEPRAZOLE [Concomitant]
  8. DILAUDID [Concomitant]
     Route: 042
  9. FERROUS SULFATE TAB [Concomitant]
  10. MESALAMINE [Concomitant]
     Route: 048
  11. MERCAPTOPURINE [Concomitant]
  12. PROZAC [Concomitant]
  13. ELAVIL [Concomitant]
  14. PREDNISONE TAB [Concomitant]
  15. CALCIUM [Concomitant]
  16. PROBIOTICS [Concomitant]
  17. SOLU-MEDROL [Concomitant]

REACTIONS (1)
  - INFLAMMATORY BOWEL DISEASE [None]
